FAERS Safety Report 16834946 (Version 1)
Quarter: 2019Q3

REPORT INFORMATION
  Report Type: Spontaneous
  Country: US (occurrence: US)
  Receive Date: 20190920
  Receipt Date: 20190920
  Transmission Date: 20191005
  Serious: Yes (Hospitalization, Other)
  Sender: FDA-Public Use
  Company Number: US-SHIRE-US201930807

PATIENT
  Age: 50 Year
  Sex: Female

DRUGS (1)
  1. NATPARA (PARATHYROID HORMONE) [Suspect]
     Active Substance: PARATHYROID HORMONE
     Indication: HYPOPARATHYROIDISM
     Dosage: 21 MICROGRAM, 2X/DAY:BID
     Route: 058

REACTIONS (5)
  - Blood magnesium decreased [Recovered/Resolved]
  - Wrong technique in product usage process [Recovered/Resolved]
  - Muscle spasms [Recovered/Resolved]
  - Expired product administered [Unknown]
  - Feeling abnormal [Recovered/Resolved]

NARRATIVE: CASE EVENT DATE: 20190915
